FAERS Safety Report 21770274 (Version 1)
Quarter: 2022Q4

REPORT INFORMATION
  Report Type: Spontaneous
  Country: IT (occurrence: IT)
  Receive Date: 20221223
  Receipt Date: 20221223
  Transmission Date: 20230112
  Serious: Yes (Other)
  Sender: FDA-Public Use
  Company Number: None

PATIENT
  Age: 72 Year
  Sex: Female

DRUGS (10)
  1. CIPROFLOXACIN [Suspect]
     Active Substance: CIPROFLOXACIN
     Indication: Diverticulitis
     Dosage: 1000 MILLIGRAM DAILY; 500 MG BID ORALLY.; CIPROFLOXACINA
     Route: 048
  2. POTASSIUM CHLORIDE [Suspect]
     Active Substance: POTASSIUM CHLORIDE
     Indication: Hypokalaemia
     Dosage: 600 MILLIGRAM DAILY; 600 MG/DAY ORALLY.
     Route: 048
  3. BISOPROLOL FUMARATE [Concomitant]
     Active Substance: BISOPROLOL FUMARATE
     Indication: Product used for unknown indication
     Dosage: UNIT DOSE: 2.5MG; FREQ TIME: 24HOURS; THERAPY START AND END DATE: NASK
  4. FENPATCH [Concomitant]
     Indication: Product used for unknown indication
     Dosage: UNIT DOSE: 50MCG; FREQ TIME: 24HOURS; THERAPY START AND END DATE: NASK
  5. METRONIDAZOLE [Concomitant]
     Active Substance: METRONIDAZOLE
     Indication: Diverticulitis
     Dosage: 250 MG 2 CP BID.; THERAPY START AND END DATE: NASK; UNIT DOSE: 250MG; FREQ TIME: 6HOURS
  6. ENALAPRIL + IDROCLOROTIAZIDE [Concomitant]
     Indication: Product used for unknown indication
     Dosage: UNIT DOSE: 1DF; FREQ TIME: 24HOURS; THERAPY START AND END DATE: NASK
  7. EPARINA [Concomitant]
     Indication: Product used for unknown indication
     Dosage: UNIT DOSE: 4000IU; FREQ TIME: 24HOURS; THERAPY START AND END DATE: NASK
  8. ATORVASTATIN [Concomitant]
     Active Substance: ATORVASTATIN
     Indication: Product used for unknown indication
     Dosage: UNIT DOSE: 10MG; FREQ TIME: 24HOURS; THERAPY START AND END DATE: NASK
  9. PAROXETINE [Concomitant]
     Active Substance: PAROXETINE
     Indication: Product used for unknown indication
     Dosage: 20 GTT DAILY; 20 DROPS IN THE MORNING. THERAPY START AND END DATE: NASK
  10. XANAX [Concomitant]
     Active Substance: ALPRAZOLAM
     Indication: Product used for unknown indication
     Dosage: UNIT DOSE: 10DF THERAPY START AND END DATE: NASK

REACTIONS (1)
  - Toxic skin eruption [Recovering/Resolving]

NARRATIVE: CASE EVENT DATE: 20221128
